FAERS Safety Report 7543181-3 (Version None)
Quarter: 2011Q2

REPORT INFORMATION
  Report Type: 
  Country: None (occurrence: None)
  Receive Date: 20110613
  Receipt Date: 20110601
  Transmission Date: 20111010
  Serious: Yes (Hospitalization)
  Sender: FDA-Public Use
  Company Number: US-MERCK-1106USA00270

PATIENT
  Age: 70 Year
  Sex: Female

DRUGS (3)
  1. FOSAMAX [Suspect]
     Indication: OSTEOPOROSIS
     Route: 048
     Dates: start: 19990101, end: 20091201
  2. FOSAMAX [Suspect]
     Indication: OSTEOPENIA
     Route: 048
     Dates: start: 19990101, end: 20091201
  3. ALENDRONATE SODIUM [Suspect]
     Route: 048
     Dates: start: 20080401, end: 20090901

REACTIONS (27)
  - BONE DISORDER [None]
  - ROTATOR CUFF SYNDROME [None]
  - SPINAL OSTEOARTHRITIS [None]
  - VESTIBULITIS [None]
  - COLONIC POLYP [None]
  - COLON ADENOMA [None]
  - LUMBAR RADICULOPATHY [None]
  - TINNITUS [None]
  - BURSITIS [None]
  - OSTEOARTHRITIS [None]
  - PAIN IN EXTREMITY [None]
  - MASS [None]
  - BACK PAIN [None]
  - JOINT EFFUSION [None]
  - SLEEP DISORDER [None]
  - MUSCULOSKELETAL PAIN [None]
  - CORONARY ARTERY DISEASE [None]
  - PRINZMETAL ANGINA [None]
  - INTERVERTEBRAL DISC SPACE NARROWING [None]
  - LEFT VENTRICULAR DYSFUNCTION [None]
  - OTITIS MEDIA [None]
  - VERTIGO [None]
  - DYSPLASIA [None]
  - DYSPNOEA [None]
  - FALL [None]
  - FEMUR FRACTURE [None]
  - DILATATION ATRIAL [None]
